FAERS Safety Report 9174824 (Version 1)
Quarter: 2013Q1

REPORT INFORMATION
  Report Type: Spontaneous
  Country: GB (occurrence: None)
  Receive Date: 20130318
  Receipt Date: 20130318
  Transmission Date: 20140127
  Serious: Yes (Hospitalization)
  Sender: FDA-Public Use
  Company Number: AUR-APL-2013-02227

PATIENT
  Age: 49 Year
  Sex: Male

DRUGS (2)
  1. CIPROFLOXACIN [Suspect]
     Indication: URINARY TRACT INFECTION
     Dosage: STOPPED
     Route: 048
  2. CIPROFLOXACIN (CIPROFLOXACIN ) [Suspect]
     Indication: URINARY TRACT INFECTION
     Dosage: STOPPED?
     Route: 042

REACTIONS (2)
  - Neuropathy peripheral [None]
  - Burning sensation [None]
